FAERS Safety Report 6098130-4 (Version None)
Quarter: 2009Q1

REPORT INFORMATION
  Report Type: 
  Country: None (occurrence: None)
  Receive Date: 20090227
  Receipt Date: 20090224
  Transmission Date: 20090719
  Serious: No
  Sender: FDA-Public Use
  Company Number: US-B.I. PHARMACEUTICALS,INC./RIDGEFIELD-2009-BP-02346BP

PATIENT
  Sex: Female

DRUGS (4)
  1. CATAPRES-TTS-1 [Suspect]
     Indication: HYPERTENSION
     Dosage: .1MG
     Route: 062
     Dates: start: 20081001
  2. ATENOLOL [Concomitant]
     Indication: TACHYCARDIA
     Dosage: 200MG
     Route: 048
  3. ATENOLOL [Concomitant]
     Indication: HYPERTENSION
  4. HYDROCODONE [Concomitant]

REACTIONS (2)
  - APPLICATION SITE IRRITATION [None]
  - THERAPEUTIC RESPONSE DECREASED [None]
